FAERS Safety Report 22595179 (Version 1)
Quarter: 2023Q2

REPORT INFORMATION
  Report Type: Spontaneous
  Country: GB (occurrence: GB)
  Receive Date: 20230613
  Receipt Date: 20230613
  Transmission Date: 20230722
  Serious: Yes (Other)
  Sender: FDA-Public Use
  Company Number: None

PATIENT
  Age: 64 Year

DRUGS (20)
  1. METHYLPREDNISOLONE SODIUM SUCCINATE [Suspect]
     Active Substance: METHYLPREDNISOLONE SODIUM SUCCINATE
     Dosage: 125 MG
  2. PIPERACILLIN SODIUM\TAZOBACTAM SODIUM [Suspect]
     Active Substance: PIPERACILLIN SODIUM\TAZOBACTAM SODIUM
     Dosage: 4.5 G, 2X/DAY
     Dates: start: 20230415
  3. AMOXICILLIN\CLAVULANATE POTASSIUM [Suspect]
     Active Substance: AMOXICILLIN\CLAVULANATE POTASSIUM
     Dosage: 500MG/125MG THREE TIMES A DAY
     Route: 048
  4. COTRIMOXAZOLE [Suspect]
     Active Substance: SULFAMETHOXAZOLE\TRIMETHOPRIM
     Dosage: 80MG/400MG. ONCE DAILY
     Route: 048
  5. ACETAMINOPHEN [Suspect]
     Active Substance: ACETAMINOPHEN
     Dosage: UNK, AS NEEDED
     Route: 048
  6. PREDNISOLONE [Suspect]
     Active Substance: PREDNISOLONE
     Dosage: 60 MG, 1X/DAY (MORNING)
     Route: 048
     Dates: start: 20230420
  7. CALCIUM CARBONATE\CHOLECALCIFEROL [Concomitant]
     Active Substance: CALCIUM CARBONATE\CHOLECALCIFEROL
     Dosage: 2 DF, 1X/DAY (MORNING)
     Route: 048
     Dates: start: 20230416
  8. DESMOPRESSIN [Concomitant]
     Active Substance: DESMOPRESSIN
     Dosage: 20 UG, 1X/DAY
     Dates: start: 20230420
  9. METOCLOPRAMIDE [Concomitant]
     Active Substance: METOCLOPRAMIDE
     Dosage: 10 MG, 3X/DAY
  10. SILDENAFIL [Concomitant]
     Active Substance: SILDENAFIL
     Dosage: 50 MG, AS NEEDED
     Route: 048
  11. METHYLPREDNISOLONE [Concomitant]
     Active Substance: METHYLPREDNISOLONE
     Dosage: 250 MG, 1X/DAY (MORNING)
     Dates: start: 20230418
  12. POLYETHYLENE GLYCOLS [Concomitant]
     Active Substance: POLYETHYLENE GLYCOLS
     Dosage: 2 DF, DAILY (SACHETS)
  13. MAGNESIUM ASPARTATE DIHYDRATE [Concomitant]
     Active Substance: MAGNESIUM ASPARTATE DIHYDRATE
     Dosage: 10 MMOL, DAILY (MORNING, SACHET)
  14. CHOLECALCIFEROL [Concomitant]
     Active Substance: CHOLECALCIFEROL
     Dosage: 40000 IU, WEEKLY
     Route: 048
     Dates: start: 20230417
  15. PREDNISOLONE [Concomitant]
     Active Substance: PREDNISOLONE
     Dosage: ONE DOSE GIVEN THAT DAY ?? - V HIGH DOSE?
     Route: 048
     Dates: start: 20230416, end: 20230416
  16. MOMETASONE [Concomitant]
     Active Substance: MOMETASONE
     Dosage: 50MCG/DOSE. INTO BOTH NOSTRILS
  17. CALCIUM CARBONATE [Concomitant]
     Active Substance: CALCIUM CARBONATE
     Dosage: 1.25 G, 3X/DAY
     Route: 048
  18. ENOXAPARIN [Concomitant]
     Active Substance: ENOXAPARIN
     Dosage: 20 MG, 1X/DAY
     Dates: start: 20230415
  19. LATANOPROST [Concomitant]
     Active Substance: LATANOPROST
     Dosage: 50MCG/ML. BOTH EYES AT NIGHT
  20. XYLOMETAZOLINE HYDROCHLORIDE [Concomitant]
     Active Substance: XYLOMETAZOLINE HYDROCHLORIDE
     Dosage: 4-6 TIMES DAILY

REACTIONS (3)
  - Liver function test abnormal [Recovered/Resolved]
  - Alanine aminotransferase increased [Unknown]
  - Liver injury [Unknown]

NARRATIVE: CASE EVENT DATE: 20230520
